FAERS Safety Report 5041313-2 (Version None)
Quarter: 2006Q2

REPORT INFORMATION
  Report Type: 
  Country: None (occurrence: None)
  Receive Date: 20060626
  Receipt Date: 20060606
  Transmission Date: 20061013
  Serious: Yes (Hospitalization)
  Sender: FDA-Public Use
  Company Number: 2006PV014410

PATIENT
  Age: 45 Year
  Sex: Female
  Weight: 104.3273 kg

DRUGS (5)
  1. BYETTA [Suspect]
     Indication: DIABETES MELLITUS NON-INSULIN-DEPENDENT
     Dosage: UNKNOWN; SC
     Route: 058
     Dates: start: 20051010, end: 20051101
  2. GLUCOPHAGE [Concomitant]
  3. LOPRESSOR [Concomitant]
  4. INSULIN [Concomitant]
  5. ACTOS [Concomitant]

REACTIONS (6)
  - ABDOMINAL PAIN [None]
  - EJECTION FRACTION DECREASED [None]
  - GALLBLADDER DISORDER [None]
  - HEPATIC STEATOSIS [None]
  - HYPERHIDROSIS [None]
  - WHITE BLOOD CELL COUNT INCREASED [None]
